FAERS Safety Report 6003667-X (Version None)
Quarter: 2008Q4

REPORT INFORMATION
  Report Type: 
  Country: None (occurrence: None)
  Receive Date: 20081216
  Receipt Date: 20080623
  Transmission Date: 20090506
  Serious: No
  Sender: FDA-Public Use
  Company Number: US-AMGEN-KDL289252

PATIENT
  Sex: Male

DRUGS (11)
  1. ARANESP [Suspect]
     Indication: DIALYSIS
  2. TOPROL-XL [Concomitant]
  3. NORVASC [Concomitant]
  4. ZESTRIL [Concomitant]
  5. LASIX [Concomitant]
  6. ASPIRIN [Concomitant]
  7. GLUCOTROL [Concomitant]
  8. ACTOS [Concomitant]
  9. LIPITOR [Concomitant]
  10. NEPHRO-CAPS [Concomitant]
  11. ZYLOPRIM [Concomitant]

REACTIONS (2)
  - MOBILITY DECREASED [None]
  - MUSCULOSKELETAL PAIN [None]
